FAERS Safety Report 6713218-X (Version None)
Quarter: 2010Q2

REPORT INFORMATION
  Report Type: 
  Country: None (occurrence: None)
  Receive Date: 20100505
  Receipt Date: 20100505
  Transmission Date: 20101027
  Serious: Yes (Other)
  Sender: FDA-Public Use
  Company Number: None

PATIENT
  Age: 2 Year
  Sex: Female
  Weight: 17.2367 kg

DRUGS (2)
  1. CHILDREN'S MOTRIN [Suspect]
     Indication: HEADACHE
     Dosage: 1 1/2  TSP EVERY 6 HOURS PO
     Route: 048
     Dates: start: 20100430, end: 20100502
  2. CHILDREN'S MOTRIN [Suspect]
     Indication: PYREXIA
     Dosage: 1 1/2  TSP EVERY 6 HOURS PO
     Route: 048
     Dates: start: 20100430, end: 20100502

REACTIONS (3)
  - EPISTAXIS [None]
  - PRODUCT QUALITY ISSUE [None]
  - SNEEZING [None]
